APPROVED DRUG PRODUCT: PHYRAGO
Active Ingredient: DASATINIB
Strength: 70MG
Dosage Form/Route: TABLET;ORAL
Application: N216099 | Product #003
Applicant: HANDA THERAPEUTICS LLC
Approved: Dec 5, 2023 | RLD: Yes | RS: No | Type: RX

PATENTS:
Patent 11324745 | Expires: Jan 22, 2041
Patent 11324745 | Expires: Jan 22, 2041
Patent 11324745 | Expires: Jan 22, 2041
Patent 11202778 | Expires: Jan 22, 2041
Patent 11202778 | Expires: Jan 22, 2041
Patent 11202778 | Expires: Jan 22, 2041
Patent 12433891 | Expires: Jan 22, 2041
Patent 12433891 | Expires: Jan 22, 2041
Patent 12433891 | Expires: Jan 22, 2041
Patent 12433891 | Expires: Jan 22, 2041
Patent 12433891 | Expires: Jan 22, 2041
Patent 12433891 | Expires: Jan 22, 2041
Patent 11298356 | Expires: Jan 22, 2041
Patent 12465606 | Expires: Jan 22, 2041

EXCLUSIVITY:
Code: M-307 | Date: Dec 5, 2026